FAERS Safety Report 19634904 (Version 1)
Quarter: 2021Q3

REPORT INFORMATION
  Report Type: Spontaneous
  Country: US (occurrence: US)
  Receive Date: 20210730
  Receipt Date: 20210730
  Transmission Date: 20211014
  Serious: No
  Sender: FDA-Public Use
  Company Number: None

PATIENT
  Age: 64 Year
  Sex: Female
  Weight: 40.5 kg

DRUGS (4)
  1. ZYLET [Suspect]
     Active Substance: LOTEPREDNOL ETABONATE\TOBRAMYCIN
     Indication: CHALAZION
     Route: 047
  2. VITAMIN D [Concomitant]
     Active Substance: VITAMIN D NOS
  3. CALCIUM BIOTIN [Concomitant]
  4. BIOIDENTICAL HORMONE [Concomitant]

REACTIONS (3)
  - Drug hypersensitivity [None]
  - Skin disorder [None]
  - Dermatochalasis [None]

NARRATIVE: CASE EVENT DATE: 20210601
